FAERS Safety Report 10769049 (Version 1)
Quarter: 2015Q1

REPORT INFORMATION
  Report Type: Spontaneous
  Country: US (occurrence: None)
  Receive Date: 20150205
  Receipt Date: 20150205
  Transmission Date: 20150721
  Serious: Yes (Hospitalization)
  Sender: FDA-Public Use
  Company Number: None

PATIENT
  Age: 94 Year
  Sex: Female
  Weight: 54 kg

DRUGS (14)
  1. PROPYLENE [Concomitant]
  2. BENAZEPRIL [Suspect]
     Active Substance: BENAZEPRIL\BENAZEPRIL HYDROCHLORIDE
     Indication: HYPERTENSION
     Route: 048
  3. CREON [Concomitant]
     Active Substance: PANCRELIPASE AMYLASE\PANCRELIPASE LIPASE\PANCRELIPASE PROTEASE
  4. CENTRUM SILVER [Concomitant]
     Active Substance: VITAMINS
  5. PEPCID [Concomitant]
     Active Substance: FAMOTIDINE
  6. LACTASE [Concomitant]
     Active Substance: LACTASE
  7. ACYCLOVIR. [Suspect]
     Active Substance: ACYCLOVIR
     Indication: HERPES ZOSTER
     Dosage: DATE OF USE: CHRONIC
     Route: 048
  8. APAP [Concomitant]
     Active Substance: ACETAMINOPHEN
  9. AMLODIPINE [Concomitant]
     Active Substance: AMLODIPINE BESYLATE
  10. CALTRATE [Concomitant]
     Active Substance: CALCIUM CARBONATE
  11. NASONEX [Concomitant]
     Active Substance: MOMETASONE FUROATE
  12. ESTRACE [Concomitant]
     Active Substance: ESTRADIOL
  13. FERROUS SULFATE [Concomitant]
     Active Substance: FERROUS SULFATE\FERROUS SULFATE, DRIED
  14. SIMETHICONE [Concomitant]
     Active Substance: DIMETHICONE\SILICON DIOXIDE\SIMETHICONE

REACTIONS (2)
  - Angioedema [None]
  - Palpitations [None]

NARRATIVE: CASE EVENT DATE: 20141001
